FAERS Safety Report 9323787 (Version 1)
Quarter: 2013Q2

REPORT INFORMATION
  Report Type: Spontaneous
  Country: IT (occurrence: IT)
  Receive Date: 20130603
  Receipt Date: 20130603
  Transmission Date: 20140414
  Serious: Yes (Other)
  Sender: FDA-Public Use
  Company Number: IT-JNJFOC-20130414397

PATIENT
  Sex: 0

DRUGS (6)
  1. INFLIXIMAB, RECOMBINANT [Suspect]
     Indication: CROHN^S DISEASE
     Dosage: AT WEEK 0, 2, 6 FOLLOWED BY MAINTENANCE EVERY 8 WEEKS
     Route: 042
  2. THIOPURINE [Concomitant]
     Route: 065
  3. METHOTREXATE [Concomitant]
     Route: 065
  4. CORTICOSTEROID [Concomitant]
     Route: 065
  5. BUDESONIDE [Concomitant]
     Route: 065
  6. BECLOMETHASONE DIPROPIONATE [Concomitant]
     Route: 065

REACTIONS (2)
  - Ileal stenosis [Unknown]
  - Intestinal obstruction [Unknown]
